FAERS Safety Report 5143581-5 (Version None)
Quarter: 2006Q4

REPORT INFORMATION
  Report Type: 
  Country: None (occurrence: None)
  Receive Date: 20061030
  Receipt Date: 20061018
  Transmission Date: 20070319
  Serious: Yes (Other)
  Sender: FDA-Public Use
  Company Number: 2005136501

PATIENT
  Age: 81 Year
  Sex: Male
  Weight: 90.7194 kg

DRUGS (10)
  1. NEURONTIN [Suspect]
     Indication: POST HERPETIC NEURALGIA
     Dosage: 900 MG (300 MG, 3 IN 1 D), ORAL
     Route: 048
     Dates: start: 20040201, end: 20050101
  2. LYRICA [Suspect]
     Indication: POST HERPETIC NEURALGIA
     Dosage: 300 MG (100 MG, 3 IN 1 D), ORAL
     Route: 048
     Dates: start: 20050826
  3. XANAX [Suspect]
     Indication: SLEEP DISORDER
     Dosage: 0.5 MG (0.5 MG, 1 IN 1 D)
  4. IBUPROFEN [Suspect]
     Indication: HERPES ZOSTER
     Dates: start: 20040101, end: 20040101
  5. OXYCODONE HCL [Suspect]
     Indication: POST HERPETIC NEURALGIA
  6. GABAPENTIN [Suspect]
     Dates: start: 20050101
  7. CYMBALTA [Concomitant]
  8. TRILEPTAL [Concomitant]
  9. HYDROCODONE (HYDROCODONE) [Concomitant]
  10. TRAMADOL HCL [Concomitant]

REACTIONS (30)
  - ACTIVITIES OF DAILY LIVING IMPAIRED [None]
  - AMNESIA [None]
  - BALANCE DISORDER [None]
  - BRONCHITIS [None]
  - CONDITION AGGRAVATED [None]
  - DEPRESSED MOOD [None]
  - DISORIENTATION [None]
  - DIZZINESS [None]
  - DRUG INEFFECTIVE [None]
  - DYSSTASIA [None]
  - FEAR OF FALLING [None]
  - FEELING ABNORMAL [None]
  - FEELING DRUNK [None]
  - FORMICATION [None]
  - HYPERAESTHESIA [None]
  - IMPAIRED DRIVING ABILITY [None]
  - INCORRECT DOSE ADMINISTERED [None]
  - INSOMNIA [None]
  - JOINT INJURY [None]
  - LIGAMENT RUPTURE [None]
  - PAIN [None]
  - PHARMACEUTICAL PRODUCT COMPLAINT [None]
  - POST HERPETIC NEURALGIA [None]
  - ROAD TRAFFIC ACCIDENT [None]
  - ROTATOR CUFF SYNDROME [None]
  - SOMNOLENCE [None]
  - TENDON RUPTURE [None]
  - THERAPY NON-RESPONDER [None]
  - VERTIGO [None]
  - VISUAL ACUITY REDUCED [None]
